FAERS Safety Report 9403145 (Version 1)
Quarter: 2013Q3

REPORT INFORMATION
  Report Type: Spontaneous
  Country: FR (occurrence: FR)
  Receive Date: 20130716
  Receipt Date: 20130716
  Transmission Date: 20140515
  Serious: Yes (Other)
  Sender: FDA-Public Use
  Company Number: FR-GLAXOSMITHKLINE-B0906410A

PATIENT
  Sex: Male

DRUGS (6)
  1. LAMICTAL [Suspect]
     Indication: PRODUCT USED FOR UNKNOWN INDICATION
     Route: 048
     Dates: start: 201208
  2. PARACETAMOL [Suspect]
     Indication: PRODUCT USED FOR UNKNOWN INDICATION
     Dosage: 3G PER DAY
     Route: 048
     Dates: start: 201212
  3. CORGARD [Concomitant]
     Indication: CONDUCTION DISORDER
     Route: 065
  4. SPIRONOLACTONE [Concomitant]
     Indication: PRODUCT USED FOR UNKNOWN INDICATION
     Route: 065
     Dates: start: 201205
  5. KALEORID [Concomitant]
     Indication: HYPOKALAEMIA
     Route: 065
  6. SEROPLEX [Concomitant]
     Indication: PRODUCT USED FOR UNKNOWN INDICATION
     Route: 065
     Dates: start: 201108

REACTIONS (9)
  - Hepatitis acute [Recovered/Resolved]
  - Gastrointestinal disorder [Unknown]
  - Pyrexia [Unknown]
  - Inflammation [Unknown]
  - Serum ferritin increased [None]
  - Hypothyroidism [None]
  - Blood glucose increased [None]
  - Coagulation factor V level abnormal [None]
  - Platelet count increased [None]
